FAERS Safety Report 4678198-X (Version None)
Quarter: 2005Q2

REPORT INFORMATION
  Report Type: 
  Country: None (occurrence: None)
  Receive Date: 20050527
  Receipt Date: 20050519
  Transmission Date: 20051028
  Serious: Yes (Hospitalization)
  Sender: FDA-Public Use
  Company Number: MK200505-0235-1

PATIENT
  Age: 11 Month
  Sex: Female

DRUGS (2)
  1. ANAFRANIL [Suspect]
     Indication: BIPOLAR DISORDER
     Dosage: UNK, TRANSPLACENTAL
     Route: 064
     Dates: end: 20041201
  2. DEPAKOTE [Concomitant]

REACTIONS (8)
  - ALPHA 1 FOETOPROTEIN INCREASED [None]
  - DEVELOPMENTAL COORDINATION DISORDER [None]
  - DRUG EXPOSURE DURING PREGNANCY [None]
  - HEREDITARY ATAXIA [None]
  - PLATELET COUNT INCREASED [None]
  - RETICULOCYTE COUNT ABNORMAL [None]
  - SKIN DISCOLOURATION [None]
  - WHITE BLOOD CELL COUNT INCREASED [None]
